FAERS Safety Report 9554410 (Version 2)
Quarter: 2013Q3

REPORT INFORMATION
  Report Type: Spontaneous
  Country: JP (occurrence: JP)
  Receive Date: 20130925
  Receipt Date: 20130925
  Transmission Date: 20140515
  Serious: Yes (Other)
  Sender: FDA-Public Use
  Company Number: JP-TAKEDA-TCI2013A04805

PATIENT
  Sex: 0

DRUGS (2)
  1. TAKEPRON CAPSULES 30 [Suspect]
     Route: 048
  2. FIBRATES [Suspect]
     Route: 048

REACTIONS (1)
  - Rhabdomyolysis [Unknown]
